FAERS Safety Report 10493390 (Version 1)
Quarter: 2014Q4

REPORT INFORMATION
  Report Type: Report from Study
  Country: US (occurrence: US)
  Receive Date: 20141003
  Receipt Date: 20141003
  Transmission Date: 20150528
  Serious: Yes (Other)
  Sender: FDA-Public Use
  Company Number: US-AMGEN-USASL2014075229

PATIENT
  Age: 96 Year
  Sex: Female

DRUGS (2)
  1. PROLIA [Suspect]
     Active Substance: DENOSUMAB
     Indication: OSTEOPOROSIS POSTMENOPAUSAL
     Dosage: UNK
     Route: 065
  2. RECLAST [Concomitant]
     Active Substance: ZOLEDRONIC ACID

REACTIONS (3)
  - Gastrooesophageal reflux disease [Unknown]
  - Chronic kidney disease [Unknown]
  - Vomiting [Unknown]
